FAERS Safety Report 6805050-3 (Version None)
Quarter: 2010Q2

REPORT INFORMATION
  Report Type: 
  Country: None (occurrence: None)
  Receive Date: 20100628
  Receipt Date: 20070801
  Transmission Date: 20101027
  Serious: No
  Sender: FDA-Public Use
  Company Number: US-PFIZER INC-2007063803

PATIENT
  Sex: Male

DRUGS (3)
  1. GEODON [Suspect]
     Indication: BIPOLAR DISORDER
     Dates: start: 20020101
  2. LITHIUM [Concomitant]
  3. TESTOSTERONE [Concomitant]

REACTIONS (1)
  - BLOOD CREATINE PHOSPHOKINASE INCREASED [None]
